FAERS Safety Report 21613193 (Version 3)
Quarter: 2022Q4

REPORT INFORMATION
  Report Type: Spontaneous
  Country: US (occurrence: US)
  Receive Date: 20221118
  Receipt Date: 20221220
  Transmission Date: 20230113
  Serious: No
  Sender: FDA-Public Use
  Company Number: US-PFIZER INC-PV202200103885

PATIENT
  Age: 17 Year
  Sex: Male

DRUGS (1)
  1. GENOTROPIN [Suspect]
     Active Substance: SOMATROPIN
     Dosage: 3 MG

REACTIONS (3)
  - Wrong technique in device usage process [Unknown]
  - Drug dose omission by device [Unknown]
  - Device mechanical issue [Unknown]
